FAERS Safety Report 4516572-2 (Version None)
Quarter: 2004Q4

REPORT INFORMATION
  Report Type: 
  Country: None (occurrence: None)
  Receive Date: 20041202
  Receipt Date: 20041122
  Transmission Date: 20050328
  Serious: Yes (Other)
  Sender: FDA-Public Use
  Company Number: NL-ROCHE-386860

PATIENT
  Age: 41 Year
  Sex: Male

DRUGS (1)
  1. INTERFERON ALFA-2A [Suspect]
     Indication: NON-HODGKIN'S LYMPHOMA
     Route: 065

REACTIONS (3)
  - DRUG TOXICITY [None]
  - HEPATIC STEATOSIS [None]
  - LYMPHOMA [None]
